FAERS Safety Report 12165761 (Version 1)
Quarter: 2016Q1

REPORT INFORMATION
  Report Type: Spontaneous
  Country: US (occurrence: US)
  Receive Date: 20160309
  Receipt Date: 20160309
  Transmission Date: 20160526
  Serious: No
  Sender: FDA-Public Use
  Company Number: US-WATSON-2015-18935

PATIENT
  Sex: Male

DRUGS (5)
  1. SUTENT [Concomitant]
     Active Substance: SUNITINIB MALATE
     Indication: RENAL CELL CARCINOMA
     Dosage: UNK, UNKNOWN
     Route: 065
  2. MINOXIDIL (WATSON LABORATORIES) [Suspect]
     Active Substance: MINOXIDIL
     Indication: ALOPECIA
     Dosage: UNKNOWN
     Route: 061
  3. ROLAIDS                            /00069401/ [Concomitant]
     Indication: GASTROOESOPHAGEAL REFLUX DISEASE
     Dosage: UNK, UNKNOWN
     Route: 048
  4. ONDANSETRON [Concomitant]
     Active Substance: ONDANSETRON
     Indication: NAUSEA
     Dosage: UNK, UNKNOWN
     Route: 065
  5. BENEFIBER                          /00677201/ [Concomitant]
     Active Substance: ICODEXTRIN
     Indication: CONSTIPATION
     Dosage: UNK, UNKNOWN
     Route: 065

REACTIONS (1)
  - Drug ineffective [Unknown]
